FAERS Safety Report 6247451-0 (Version None)
Quarter: 2009Q2

REPORT INFORMATION
  Report Type: 
  Country: None (occurrence: None)
  Receive Date: 20090626
  Receipt Date: 20090617
  Transmission Date: 20091009
  Serious: Yes (Hospitalization, Other)
  Sender: FDA-Public Use
  Company Number: US-CELGENEUS-163-20785-09030516

PATIENT
  Sex: Female

DRUGS (1)
  1. THALOMID [Suspect]
     Route: 048
     Dates: start: 20080215, end: 20090206

REACTIONS (4)
  - DRUG INTOLERANCE [None]
  - PAIN IN EXTREMITY [None]
  - PARAPLEGIA [None]
  - SPINAL CORD COMPRESSION [None]
